APPROVED DRUG PRODUCT: HALFAN
Active Ingredient: HALOFANTRINE HYDROCHLORIDE
Strength: 250MG
Dosage Form/Route: TABLET;ORAL
Application: N020250 | Product #001
Applicant: GLAXOSMITHKLINE
Approved: Jul 24, 1992 | RLD: No | RS: No | Type: DISCN